FAERS Safety Report 8996358 (Version 3)
Quarter: 2013Q2

REPORT INFORMATION
  Report Type: Spontaneous
  Country: US (occurrence: US)
  Receive Date: 20130104
  Receipt Date: 20130415
  Transmission Date: 20140414
  Serious: Yes (Hospitalization)
  Sender: FDA-Public Use
  Company Number: US-BIOGENIDEC-2013BI000446

PATIENT
  Sex: Female

DRUGS (1)
  1. TYSABRI [Suspect]
     Indication: MULTIPLE SCLEROSIS
     Route: 042
     Dates: start: 20071109, end: 20121217

REACTIONS (5)
  - Arthralgia [Not Recovered/Not Resolved]
  - Hallucination [Recovered/Resolved]
  - Balance disorder [Not Recovered/Not Resolved]
  - Confusional state [Recovered/Resolved]
  - Osteoarthritis [Not Recovered/Not Resolved]
